FAERS Safety Report 8679448 (Version 3)
Quarter: 2013Q2

REPORT INFORMATION
  Report Type: Spontaneous
  Country: SE (occurrence: SE)
  Receive Date: 20120724
  Receipt Date: 20130422
  Transmission Date: 20140414
  Serious: Yes (Hospitalization)
  Sender: FDA-Public Use
  Company Number: SE-JNJFOC-20120708703

PATIENT
  Age: 43 Year
  Sex: Female

DRUGS (1)
  1. SIMPONI [Suspect]
     Indication: PSORIATIC ARTHROPATHY
     Dosage: TOTALLY 3 TIMES RECEIVED
     Route: 058
     Dates: start: 20110616, end: 20110915

REACTIONS (4)
  - Depression [Recovered/Resolved with Sequelae]
  - Psoriasis [Unknown]
  - Discomfort [Recovered/Resolved]
  - Anxiety [Recovered/Resolved]
